FAERS Safety Report 5132143-1 (Version None)
Quarter: 2006Q4

REPORT INFORMATION
  Report Type: 
  Country: None (occurrence: None)
  Receive Date: 20061017
  Receipt Date: 20061004
  Transmission Date: 20070319
  Serious: Yes (Hospitalization, Disabling)
  Sender: FDA-Public Use
  Company Number: 2006123696

PATIENT
  Age: 42 Year
  Sex: Male
  Weight: 117.9352 kg

DRUGS (3)
  1. BEXTRA [Suspect]
     Indication: ARTHROPATHY
     Dosage: 20 MG (20 MG, 1 IN 1 D);
     Dates: start: 20040216
  2. BEXTRA [Suspect]
     Indication: MUSCULOSKELETAL STIFFNESS
     Dosage: 20 MG (20 MG, 1 IN 1 D);
     Dates: start: 20040216
  3. BEXTRA [Suspect]
     Indication: PAIN
     Dosage: 20 MG (20 MG, 1 IN 1 D);
     Dates: start: 20040216

REACTIONS (6)
  - ACTIVITIES OF DAILY LIVING IMPAIRED [None]
  - COMPUTERISED TOMOGRAM ABNORMAL [None]
  - ELECTROCARDIOGRAM ABNORMAL [None]
  - LUNG DISORDER [None]
  - PULMONARY EMBOLISM [None]
  - ULTRASOUND DOPPLER ABNORMAL [None]
